FAERS Safety Report 9788267 (Version 2)
Quarter: 2014Q1

REPORT INFORMATION
  Report Type: Spontaneous
  Country: ES (occurrence: ES)
  Receive Date: 20131230
  Receipt Date: 20140127
  Transmission Date: 20141002
  Serious: Yes (Other)
  Sender: FDA-Public Use
  Company Number: ES-AMGEN-ESPSP2013090798

PATIENT
  Age: 52 Year
  Sex: Female
  Weight: 70 kg

DRUGS (8)
  1. ENBREL [Suspect]
     Indication: PSORIATIC ARTHROPATHY
     Dosage: 50 MG, WEEKLY
     Route: 058
     Dates: start: 201307, end: 20131212
  2. LORAZEPAM [Suspect]
     Indication: PRODUCT USED FOR UNKNOWN INDICATION
     Dosage: 1 MG, 3X/DAY
     Route: 065
     Dates: end: 20131212
  3. VENLAFAXINE HCL [Suspect]
     Indication: DEPRESSION
     Dosage: 150 MG, 1X/DAY
     Route: 065
     Dates: end: 20131212
  4. OMEPRAZOLE [Suspect]
     Indication: PROPHYLAXIS
     Dosage: UNK, ONCE PER DAY
     Route: 065
     Dates: end: 20131212
  5. SALAZOPYRIN [Suspect]
     Indication: PSORIATIC ARTHROPATHY
     Dosage: 2 TABLETS IN THE MORNING AND 2 TABLETS IN THE AFTERNOON
     Route: 065
     Dates: end: 20131212
  6. SOMNOVIT [Suspect]
     Indication: SLEEP DISORDER
     Dosage: 1 MG, 1X/DAY
     Route: 065
     Dates: end: 20131212
  7. VOLTAREN /00372302/ [Suspect]
     Indication: PRODUCT USED FOR UNKNOWN INDICATION
     Dosage: UNK, TWICE DAILY
     Route: 065
  8. TRAMADOL AND ACETAMINOPHEN [Concomitant]
     Indication: PSORIATIC ARTHROPATHY
     Dosage: 2 TABLETS, EVERY 6 HOURS

REACTIONS (1)
  - Drug-induced liver injury [Recovered/Resolved]
